FAERS Safety Report 9382724 (Version 1)
Quarter: 2013Q3

REPORT INFORMATION
  Report Type: Spontaneous
  Country: US (occurrence: US)
  Receive Date: 20130703
  Receipt Date: 20130703
  Transmission Date: 20140515
  Serious: No
  Sender: FDA-Public Use
  Company Number: US-UPSHER-SMITH LABORATORIES, INC.-12003562

PATIENT
  Age: 54 Year
  Sex: Female

DRUGS (6)
  1. DIVIGEL [Suspect]
     Indication: HOT FLUSH
     Dosage: 0.5 MG, QD
     Route: 061
     Dates: start: 2010, end: 201103
  2. DIVIGEL [Suspect]
     Indication: HOT FLUSH
     Dosage: 1.0 MG, QD
     Route: 061
     Dates: start: 201103, end: 201211
  3. PROMETRIUM [Concomitant]
     Dosage: UNK
  4. SARAFEM                            /00724401/ [Concomitant]
     Dosage: UNK
  5. VESICARE                           /01735901/ [Concomitant]
     Indication: HYPERTONIC BLADDER
     Dosage: UNK
  6. TESTOSTERONE [Suspect]
     Indication: BLOOD TESTOSTERONE DECREASED
     Dosage: UNK, UNK
     Route: 065
     Dates: start: 201205, end: 201211

REACTIONS (6)
  - Drug ineffective [Recovered/Resolved]
  - Product quality issue [Recovered/Resolved]
  - Fatigue [Unknown]
  - Insomnia [Unknown]
  - Loss of libido [Unknown]
  - Disturbance in attention [Unknown]
